FAERS Safety Report 5698404-2 (Version None)
Quarter: 2008Q2

REPORT INFORMATION
  Report Type: 
  Country: None (occurrence: None)
  Receive Date: 20080408
  Receipt Date: 20080402
  Transmission Date: 20081010
  Serious: Yes (Hospitalization)
  Sender: FDA-Public Use
  Company Number: US-GENENTECH-258714

PATIENT
  Sex: Female

DRUGS (1)
  1. AVASTIN [Suspect]
     Indication: RETINAL OEDEMA
     Dosage: UNK, SINGLE
     Route: 031
     Dates: start: 20071201

REACTIONS (3)
  - DYSPNOEA [None]
  - FEELING HOT [None]
  - VISUAL ACUITY REDUCED [None]
